FAERS Safety Report 4883782-4 (Version None)
Quarter: 2006Q1

REPORT INFORMATION
  Report Type: 
  Country: None (occurrence: None)
  Receive Date: 20060118
  Receipt Date: 20041215
  Transmission Date: 20060701
  Serious: Yes (Hospitalization)
  Sender: FDA-Public Use
  Company Number: FR-ABBOTT-04P-056-0283921-00

PATIENT
  Sex: Male

DRUGS (5)
  1. RITONAVIR SOFT GELATIN CAPSULES [Suspect]
     Indication: HIV INFECTION
     Route: 048
     Dates: start: 20040217
  2. TIPRANAVIR [Concomitant]
     Indication: HIV INFECTION
     Route: 048
     Dates: start: 20040217
  3. FUZEON [Concomitant]
     Indication: HIV INFECTION
     Route: 058
     Dates: start: 20040217
  4. TRIZIVIR [Concomitant]
     Indication: HIV INFECTION
     Dates: start: 20040217
  5. VIREAD [Concomitant]
     Indication: HIV INFECTION
     Dates: start: 20040217

REACTIONS (4)
  - HEMIANOPIA [None]
  - MIGRAINE [None]
  - MIGRAINE WITH AURA [None]
  - NEUROPATHY [None]
